FAERS Safety Report 6120076-3 (Version None)
Quarter: 2009Q1

REPORT INFORMATION
  Report Type: 
  Country: None (occurrence: None)
  Receive Date: 20090311
  Receipt Date: 20090225
  Transmission Date: 20090719
  Serious: Yes (Hospitalization)
  Sender: FDA-Public Use
  Company Number: FR-1168541

PATIENT
  Age: 70 Year
  Sex: Male

DRUGS (2)
  1. AZOPT [Suspect]
     Indication: INTRAOCULAR PRESSURE INCREASED
     Dosage: OPHTHALMIC, FEW YEARS
     Route: 047
     Dates: start: 20020201, end: 20081120
  2. XALATAN [Concomitant]

REACTIONS (2)
  - ACUTE RESPIRATORY FAILURE [None]
  - BRONCHOSPASM [None]
